FAERS Safety Report 25768541 (Version 1)
Quarter: 2025Q3

REPORT INFORMATION
  Report Type: Spontaneous
  Country: US (occurrence: US)
  Receive Date: 20250905
  Receipt Date: 20250905
  Transmission Date: 20251021
  Serious: Yes (Hospitalization, Disabling)
  Sender: DR REDDYS
  Company Number: US-MLMSERVICE-20250822-PI624250-00057-1

PATIENT
  Age: 59 Year
  Sex: Male

DRUGS (1)
  1. ATORVASTATIN [Suspect]
     Active Substance: ATORVASTATIN
     Indication: Product used for unknown indication

REACTIONS (2)
  - Immune-mediated myositis [Recovering/Resolving]
  - Fall [Recovering/Resolving]
